FAERS Safety Report 21664372 (Version 1)
Quarter: 2022Q4

REPORT INFORMATION
  Report Type: Spontaneous
  Country: US (occurrence: US)
  Receive Date: 20221130
  Receipt Date: 20221130
  Transmission Date: 20230113
  Serious: No
  Sender: FDA-Public Use
  Company Number: US-THERAPEUTICSMD-2022TMD00405

PATIENT
  Sex: Female
  Weight: 77.098 kg

DRUGS (10)
  1. BIJUVA [Suspect]
     Active Substance: ESTRADIOL\PROGESTERONE
     Indication: Hot flush
     Dosage: 1 CAPSULE, 1X/DAY
     Route: 048
     Dates: start: 202111
  2. ACIPHEX [Concomitant]
     Active Substance: RABEPRAZOLE SODIUM
     Dosage: 20 MG, 2X/DAY
  3. HUMIRA [Concomitant]
     Active Substance: ADALIMUMAB
     Dosage: 40 MG, 2X/MONTH
  4. CYCLOSPORINE [Concomitant]
     Active Substance: CYCLOSPORINE
     Dosage: 1 DROP, 2X/DAY
     Route: 047
  5. ZYRTEC [Concomitant]
     Active Substance: CETIRIZINE HYDROCHLORIDE
     Dosage: 10 MG, 1X/DAY
  6. IMODIUM [Concomitant]
     Active Substance: LOPERAMIDE HYDROCHLORIDE
     Dosage: UNK, 2X/DAY MINIMUM
  7. VITAMIN D3 [Concomitant]
     Active Substance: CHOLECALCIFEROL
     Dosage: 50 ?G, 1X/DAY
  8. VITAMIN B12 [Concomitant]
     Active Substance: CYANOCOBALAMIN
     Dosage: 1000 ?G, 1X/DAY
  9. CALCIUM [Concomitant]
     Active Substance: CALCIUM
     Dosage: 25 ?G, 1X/DAY
  10. LEXAPRO [Concomitant]
     Active Substance: ESCITALOPRAM OXALATE
     Dosage: 10 MG, 1X/DAY

REACTIONS (1)
  - Headache [Not Recovered/Not Resolved]
